FAERS Safety Report 22382328 (Version 1)
Quarter: 2023Q2

REPORT INFORMATION
  Report Type: Spontaneous
  Country: RU (occurrence: None)
  Receive Date: 20230530
  Receipt Date: 20230530
  Transmission Date: 20230721
  Serious: Yes (Hospitalization, Other)
  Sender: FDA-Public Use
  Company Number: RU-ROCHE-3355311

PATIENT
  Age: 64 Year
  Sex: Male

DRUGS (7)
  1. TECENTRIQ [Suspect]
     Active Substance: ATEZOLIZUMAB
     Indication: Non-small cell lung cancer
     Dosage: DAY 1, CYCLE 21 DAYS
     Route: 041
     Dates: start: 20211208
  2. DOCETAXEL [Suspect]
     Active Substance: DOCETAXEL
     Indication: Non-small cell lung cancer
     Dosage: ON DAY 1
     Route: 065
     Dates: start: 20200721
  3. CISPLATIN [Suspect]
     Active Substance: CISPLATIN
     Indication: Non-small cell lung cancer
     Dosage: ON DAY 1
     Route: 065
     Dates: start: 20200721
  4. FLUOROURACIL [Suspect]
     Active Substance: FLUOROURACIL
     Indication: Non-small cell lung cancer
     Dosage: ON DAYS 1-5, CYCLE 21 DAYS.
     Route: 065
     Dates: start: 20200721
  5. PACLITAXEL [Suspect]
     Active Substance: PACLITAXEL
     Indication: Non-small cell lung cancer
     Dosage: ON DAY 1
     Route: 065
     Dates: start: 20200420
  6. CARBOPLATIN [Suspect]
     Active Substance: CARBOPLATIN
     Indication: Non-small cell lung cancer
     Dosage: AUC 5 ON DAY 1, CYCLE 21
     Route: 065
     Dates: start: 20210630
  7. ETOPOSIDE [Suspect]
     Active Substance: ETOPOSIDE
     Indication: Non-small cell lung cancer
     Dosage: ON DAYS 1-3
     Route: 065
     Dates: start: 20210630

REACTIONS (2)
  - Coronary artery disease [Unknown]
  - Atrial fibrillation [Unknown]
